FAERS Safety Report 9103303 (Version 5)
Quarter: 2013Q2

REPORT INFORMATION
  Report Type: Report from Study
  Country: DE (occurrence: DE)
  Receive Date: 20130219
  Receipt Date: 20130522
  Transmission Date: 20140414
  Serious: Yes (Hospitalization)
  Sender: FDA-Public Use
  Company Number: DE-JNJFOC-20130201718

PATIENT
  Age: 12 Year
  Sex: Female
  Weight: 29 kg

DRUGS (8)
  1. REMICADE [Suspect]
     Indication: CROHN^S DISEASE
     Route: 042
     Dates: start: 20120417, end: 20120608
  2. REMICADE [Suspect]
     Indication: CROHN^S DISEASE
     Route: 042
     Dates: start: 20120112
  3. AZATHIOPRINE [Concomitant]
     Route: 065
  4. HUMIRA [Concomitant]
     Route: 065
     Dates: start: 20120608, end: 20120824
  5. CIMZIA [Concomitant]
     Route: 065
     Dates: start: 20120824, end: 20120926
  6. METHOTREXATE [Concomitant]
     Route: 065
  7. 5-ASA [Concomitant]
     Route: 065
  8. PROBIOTICS [Concomitant]
     Route: 065

REACTIONS (1)
  - Crohn^s disease [Recovered/Resolved with Sequelae]
